FAERS Safety Report 12850768 (Version 2)
Quarter: 2017Q1

REPORT INFORMATION
  Report Type: Spontaneous
  Country: US (occurrence: US)
  Receive Date: 20161014
  Receipt Date: 20170103
  Transmission Date: 20170428
  Serious: Yes (Death)
  Sender: FDA-Public Use
  Company Number: US-RELYPSA-RLY2016002944

PATIENT
  Age: 74 Year
  Sex: Male

DRUGS (22)
  1. VELTASSA [Suspect]
     Active Substance: PATIROMER
     Indication: HYPERKALAEMIA
     Dosage: 8.4 G, QD
     Route: 048
     Dates: start: 201604
  2. REQUIP [Concomitant]
     Active Substance: ROPINIROLE HYDROCHLORIDE
  3. SENSIPAR [Concomitant]
     Active Substance: CINACALCET HYDROCHLORIDE
  4. FUROSEMIDE. [Concomitant]
     Active Substance: FUROSEMIDE
  5. TOPROL XL [Concomitant]
     Active Substance: METOPROLOL SUCCINATE
  6. BRILINTA [Concomitant]
     Active Substance: TICAGRELOR
  7. JANUVIA [Concomitant]
     Active Substance: SITAGLIPTIN PHOSPHATE
  8. OMEGA 3 FISH OIL [Concomitant]
     Active Substance: FISH OIL\OMEGA-3 FATTY ACIDS
  9. FERRIC CITRATE [Concomitant]
     Active Substance: TETRAFERRIC TRICITRATE DECAHYDRATE
  10. PHOSLO [Concomitant]
     Active Substance: CALCIUM ACETATE
  11. VENOFER [Concomitant]
     Active Substance: IRON SUCROSE
  12. ATORVASTATIN CALCIUM. [Concomitant]
     Active Substance: ATORVASTATIN CALCIUM
  13. CLONIDINE HCL [Concomitant]
     Active Substance: CLONIDINE HYDROCHLORIDE
  14. DIOVAN [Concomitant]
     Active Substance: VALSARTAN
  15. EMLA [Concomitant]
     Active Substance: LIDOCAINE\PRILOCAINE
  16. FENOFIBRATE. [Concomitant]
     Active Substance: FENOFIBRATE
  17. NIFEDIPINE. [Concomitant]
     Active Substance: NIFEDIPINE
  18. AMIODARONE HCL [Concomitant]
     Active Substance: AMIODARONE HYDROCHLORIDE
  19. RENVELA [Concomitant]
     Active Substance: SEVELAMER CARBONATE
  20. ALLOPURINOL. [Concomitant]
     Active Substance: ALLOPURINOL
  21. TAMSULOSIN HCL [Concomitant]
     Active Substance: TAMSULOSIN
  22. VITAMIN D3 [Concomitant]
     Active Substance: CHOLECALCIFEROL

REACTIONS (1)
  - Acute myocardial infarction [Fatal]

NARRATIVE: CASE EVENT DATE: 20160919
